FAERS Safety Report 16650935 (Version 1)
Quarter: 2019Q3

REPORT INFORMATION
  Report Type: Spontaneous
  Country: US (occurrence: US)
  Receive Date: 20190617
  Receipt Date: 20190617
  Transmission Date: 20191004
  Serious: No
  Sender: FDA-Public Use
  Company Number: None

PATIENT
  Age: 64 Year
  Sex: Male

DRUGS (1)
  1. STRIBILD [Suspect]
     Active Substance: COBICISTAT\ELVITEGRAVIR\EMTRICITABINE\TENOFOVIR DISOPROXIL FUMARATE
     Indication: HIV INFECTION
     Dosage: ?          OTHER STRENGTH:150-150-200 MG;OTHER DOSE:150/150/200 MG;?
     Route: 048
     Dates: start: 201802

REACTIONS (2)
  - Arthralgia [None]
  - Renal cyst [None]

NARRATIVE: CASE EVENT DATE: 201906
